FAERS Safety Report 9322093 (Version 1)
Quarter: 2013Q2

REPORT INFORMATION
  Report Type: Spontaneous
  Country: JP (occurrence: JP)
  Receive Date: 20130531
  Receipt Date: 20130531
  Transmission Date: 20140414
  Serious: Yes (Hospitalization, Other)
  Sender: FDA-Public Use
  Company Number: JP-PFIZER INC-2013163446

PATIENT
  Age: 54 Year
  Sex: Male

DRUGS (1)
  1. AMLODIPINE BESILATE [Suspect]
     Dosage: 5 MG, X 162TABS
     Route: 048

REACTIONS (9)
  - Overdose [Unknown]
  - Altered state of consciousness [Unknown]
  - Hypotension [Unknown]
  - Bradycardia [Unknown]
  - Hypothermia [Unknown]
  - Metabolic acidosis [Unknown]
  - Rhythm idioventricular [Unknown]
  - Ileus paralytic [Unknown]
  - Cardiac arrest [Recovered/Resolved]
